FAERS Safety Report 21271683 (Version 1)
Quarter: 2022Q3

REPORT INFORMATION
  Report Type: Spontaneous
  Country: DE (occurrence: None)
  Receive Date: 20220830
  Receipt Date: 20220830
  Transmission Date: 20221027
  Serious: Yes (Other)
  Sender: FDA-Public Use
  Company Number: 2022A295275

PATIENT
  Age: 71 Year
  Sex: Female

DRUGS (3)
  1. CALQUENCE [Suspect]
     Active Substance: ACALABRUTINIB
     Route: 048
     Dates: start: 202112
  2. VENETOCLAX [Concomitant]
     Active Substance: VENETOCLAX
     Route: 065
  3. IBRUTINIB [Concomitant]
     Active Substance: IBRUTINIB
     Route: 065
     Dates: start: 201910

REACTIONS (10)
  - Full blood count abnormal [Unknown]
  - Coronavirus infection [Unknown]
  - Haemorrhage [Unknown]
  - Infection [Unknown]
  - Dyspnoea [Unknown]
  - Oedema [Unknown]
  - General physical health deterioration [Unknown]
  - Weight decreased [Unknown]
  - Night sweats [Unknown]
  - Arthralgia [Unknown]
